FAERS Safety Report 8578249-6 (Version None)
Quarter: 2012Q3

REPORT INFORMATION
  Report Type: 
  Country: None (occurrence: None)
  Receive Date: 20120808
  Receipt Date: 20120801
  Transmission Date: 20120928
  Serious: Yes (Other)
  Sender: FDA-Public Use
  Company Number: AU-SANOFI-AVENTIS-2012SA054978

PATIENT
  Sex: Male

DRUGS (3)
  1. PLAVIX [Suspect]
     Dates: start: 20111201
  2. ATORVASTATIN [Concomitant]
  3. RAMIPRIL [Concomitant]

REACTIONS (1)
  - DEPRESSION [None]
